FAERS Safety Report 7606796-X (Version None)
Quarter: 2011Q3

REPORT INFORMATION
  Report Type: 
  Country: None (occurrence: None)
  Receive Date: 20110713
  Receipt Date: 20110620
  Transmission Date: 20111222
  Serious: Yes (Hospitalization)
  Sender: FDA-Public Use
  Company Number: US-GLAXOSMITHKLINE-A0869568A

PATIENT
  Age: 52 Year
  Sex: Female
  Weight: 92.3 kg

DRUGS (1)
  1. AVANDIA [Suspect]
     Indication: DIABETES MELLITUS
     Dosage: 4MG PER DAY
     Route: 048
     Dates: start: 20030323, end: 20060407

REACTIONS (6)
  - CATHETERISATION CARDIAC [None]
  - SUPRAVENTRICULAR TACHYCARDIA [None]
  - SWELLING [None]
  - CARDIAC FAILURE CONGESTIVE [None]
  - CARDIAC ABLATION [None]
  - CHEST PAIN [None]
